FAERS Safety Report 4445230-8 (Version None)
Quarter: 2004Q3

REPORT INFORMATION
  Report Type: 
  Country: None (occurrence: None)
  Receive Date: 20040819
  Receipt Date: 20040403
  Transmission Date: 20050211
  Serious: Yes (Other)
  Sender: FDA-Public Use
  Company Number: 2004023136

PATIENT
  Sex: Male

DRUGS (1)
  1. NORVASC [Suspect]
     Indication: ILL-DEFINED DISORDER

REACTIONS (1)
  - ATRIAL FIBRILLATION [None]
